FAERS Safety Report 14423992 (Version 2)
Quarter: 2018Q1

REPORT INFORMATION
  Report Type: Spontaneous
  Country: IT (occurrence: IT)
  Receive Date: 20180123
  Receipt Date: 20180227
  Transmission Date: 20180509
  Serious: Yes (Hospitalization)
  Sender: FDA-Public Use
  Company Number: IT-TEVA-2018-IT-848897

PATIENT
  Age: 66 Year
  Sex: Male

DRUGS (10)
  1. METFORMIN HYDROCHLORIDE. [Suspect]
     Active Substance: METFORMIN HYDROCHLORIDE
     Indication: PRODUCT USED FOR UNKNOWN INDICATION
     Dosage: 3000 MG
     Route: 048
  2. OMEPRAZOLE. [Suspect]
     Active Substance: OMEPRAZOLE
     Indication: PRODUCT USED FOR UNKNOWN INDICATION
     Route: 048
  3. CRESTOR [Suspect]
     Active Substance: ROSUVASTATIN CALCIUM
     Indication: PRODUCT USED FOR UNKNOWN INDICATION
     Dosage: 1 DOSAGE UNIT
     Route: 048
  4. UROREC 4 MG HARD CAPSULES [Concomitant]
     Dosage: 1 DOSAGE UNIT
     Route: 048
  5. FOSIPRES [Suspect]
     Active Substance: FOSINOPRIL
     Indication: CORONARY ARTERY DISEASE
     Dosage: 1 DOSAGE UNIT DAILY
     Route: 048
     Dates: start: 20120301, end: 20171012
  6. CARVEDILOL. [Suspect]
     Active Substance: CARVEDILOL
     Indication: CORONARY ARTERY DISEASE
     Dosage: 12.5 MILLIGRAM DAILY;
     Route: 048
     Dates: start: 20150301, end: 20171012
  7. CARDIOASPIRIN 100 MG COMPRESSE GASTRORESISTENTI [Suspect]
     Active Substance: ASPIRIN
     Route: 048
  8. CRESTOR 5 MG COMPRESSE RIVESTITE CON FILM [Concomitant]
     Route: 048
  9. CARDIOASPIRIN [Suspect]
     Active Substance: ASPIRIN
     Dosage: 1 DOSAGE UNIT
     Route: 048
  10. UROREC [Concomitant]
     Active Substance: SILODOSIN
     Dosage: 1 DOSAGE UNIT
     Route: 048

REACTIONS (4)
  - Abdominal pain lower [Recovered/Resolved]
  - Abdominal pain upper [Recovered/Resolved]
  - Hypotension [Recovered/Resolved]
  - Bradycardia [Recovered/Resolved]

NARRATIVE: CASE EVENT DATE: 20171012
